FAERS Safety Report 16098550 (Version 2)
Quarter: 2019Q2

REPORT INFORMATION
  Report Type: Spontaneous
  Country: PL (occurrence: PL)
  Receive Date: 20190321
  Receipt Date: 20190403
  Transmission Date: 20190711
  Serious: Yes (Other)
  Sender: FDA-Public Use
  Company Number: PL-ROCHE-2285440

PATIENT
  Age: 63 Year
  Sex: Male

DRUGS (3)
  1. RIBAVIRIN. [Suspect]
     Active Substance: RIBAVIRIN
     Indication: CHRONIC HEPATITIS C
     Dosage: MOST RECENT DOSE WAS RECEIVED ON AUG/2017
     Route: 065
     Dates: start: 20170216
  2. INSULIN [Concomitant]
     Active Substance: INSULIN NOS
     Route: 065
  3. SOVALDI [Suspect]
     Active Substance: SOFOSBUVIR
     Indication: CHRONIC HEPATITIS C
     Dosage: MOST RECENT DOSE WAS RECEIVED ON AUG/2017
     Route: 065
     Dates: start: 20170216

REACTIONS (3)
  - Metastases to liver [Not Recovered/Not Resolved]
  - Therapeutic product ineffective [Unknown]
  - Colorectal cancer metastatic [Not Recovered/Not Resolved]
